FAERS Safety Report 6877844-X (Version None)
Quarter: 2010Q3

REPORT INFORMATION
  Report Type: 
  Country: None (occurrence: None)
  Receive Date: 20100727
  Receipt Date: 20070830
  Transmission Date: 20110219
  Serious: Yes (Other)
  Sender: FDA-Public Use
  Company Number: US-PFIZER INC-2007009443

PATIENT
  Age: 51 Year
  Sex: Female
  Weight: 62.1 kg

DRUGS (5)
  1. CELEBREX [Suspect]
     Indication: SHOULDER OPERATION
  2. CELEBREX [Suspect]
     Indication: HUMERUS FRACTURE
  3. CELEBREX [Suspect]
     Indication: PERIARTHRITIS
  4. HYDROCODONE BITARTRATE [Concomitant]
  5. MULTI-VITAMINS [Concomitant]

REACTIONS (1)
  - RECTAL HAEMORRHAGE [None]
